FAERS Safety Report 9023366 (Version 1)
Quarter: 2013Q1

REPORT INFORMATION
  Report Type: Spontaneous
  Country: US (occurrence: US)
  Receive Date: 20130119
  Receipt Date: 20130119
  Transmission Date: 20140127
  Serious: No
  Sender: FDA-Public Use
  Company Number: US-ALLERGAN-1201076US

PATIENT
  Age: 40 Year
  Sex: Female

DRUGS (6)
  1. BOTOX? [Suspect]
     Indication: TORTICOLLIS
     Dosage: UNK
     Route: 030
     Dates: start: 201010, end: 201010
  2. BOTOX? [Suspect]
     Dosage: UNK
     Dates: start: 2006, end: 2006
  3. BOTOX? [Suspect]
     Dosage: UNK
     Dates: start: 2006, end: 2006
  4. VALIUM                             /00017001/ [Concomitant]
     Indication: PRODUCT USED FOR UNKNOWN INDICATION
     Dosage: 10-20 MG, PRN
     Route: 048
  5. ULTRAM [Concomitant]
     Indication: PRODUCT USED FOR UNKNOWN INDICATION
     Dosage: 50-100 MG
     Route: 048
  6. MOTRIN [Concomitant]
     Indication: PRODUCT USED FOR UNKNOWN INDICATION
     Dosage: 800 MG, PRN
     Route: 048

REACTIONS (1)
  - Drug ineffective [Unknown]
